FAERS Safety Report 12159736 (Version 1)
Quarter: 2016Q1

REPORT INFORMATION
  Report Type: Spontaneous
  Country: IT (occurrence: IT)
  Receive Date: 20160308
  Receipt Date: 20160308
  Transmission Date: 20160526
  Serious: Yes (Other)
  Sender: FDA-Public Use
  Company Number: PHHY2016IT028981

PATIENT
  Age: 32 Year
  Sex: Male
  Weight: 80 kg

DRUGS (2)
  1. DELORAZEPAM [Suspect]
     Active Substance: DELORAZEPAM
     Indication: PRODUCT USED FOR UNKNOWN INDICATION
     Dosage: 20 ML, ONCE/SINGLE, DROPS
     Route: 048
     Dates: start: 20160216, end: 20160216
  2. HALDOL [Suspect]
     Active Substance: HALOPERIDOL
     Indication: PRODUCT USED FOR UNKNOWN INDICATION
     Dosage: 30 ML, ONCE/SINGLE, DROPS
     Route: 048
     Dates: start: 20160216, end: 20160216

REACTIONS (2)
  - Self injurious behaviour [Unknown]
  - Overdose [Unknown]

NARRATIVE: CASE EVENT DATE: 20160216
